FAERS Safety Report 8816120 (Version 1)
Quarter: 2012Q4

REPORT INFORMATION
  Report Type: 
  Country: US (occurrence: US)
  Receive Date: 20120929
  Receipt Date: 20120929
  Transmission Date: 20130627
  Serious: Yes (Hospitalization, Other)
  Sender: FDA-Public Use
  Company Number: US-009507513-2011SP020741

PATIENT
  Sex: Female

DRUGS (1)
  1. IMPLANON [Suspect]
     Indication: CONTRACEPTION
     Dosage: 1 DF, UNK
     Route: 059
     Dates: start: 201101

REACTIONS (16)
  - Depression suicidal [Unknown]
  - Loss of consciousness [Unknown]
  - Syncope [Unknown]
  - Activities of daily living impaired [Unknown]
  - Crying [Unknown]
  - Eye pain [Unknown]
  - Menorrhagia [Unknown]
  - Oedema peripheral [Unknown]
  - Injection site anaesthesia [Unknown]
  - Hypoaesthesia [Unknown]
  - Pain in extremity [Unknown]
  - Injection site pain [Unknown]
  - Headache [Unknown]
  - Mood swings [Unknown]
  - Abdominal pain [Unknown]
  - Injection site swelling [Unknown]
